FAERS Safety Report 5833582-3 (Version None)
Quarter: 2008Q3

REPORT INFORMATION
  Report Type: 
  Country: None (occurrence: None)
  Receive Date: 20080804
  Receipt Date: 20080804
  Transmission Date: 20090109
  Serious: Yes (Other)
  Sender: FDA-Public Use
  Company Number: None

PATIENT
  Age: 10 Year
  Sex: Female
  Weight: 58.9676 kg

DRUGS (1)
  1. ADVAIR DISKUS 250/50 [Suspect]
     Indication: ASTHMA
     Dosage: 1 INHALATION 2X DAILY INHAL
     Route: 055
     Dates: start: 20080701, end: 20080802

REACTIONS (4)
  - ASTHMA [None]
  - BREATH SOUNDS ABNORMAL [None]
  - BRONCHITIS [None]
  - COUGH [None]
